FAERS Safety Report 7831452-2 (Version None)
Quarter: 2011Q4

REPORT INFORMATION
  Report Type: 
  Country: None (occurrence: None)
  Receive Date: 20111021
  Receipt Date: 20111010
  Transmission Date: 20120403
  Serious: Yes (Death)
  Sender: FDA-Public Use
  Company Number: PL-JNJFOC-20111004478

PATIENT
  Age: 18 Year
  Sex: Female

DRUGS (3)
  1. CETIRIZINE HCL [Suspect]
     Route: 048
  2. CETIRIZINE HCL [Suspect]
     Indication: RHINITIS ALLERGIC
     Route: 048
     Dates: start: 20030501, end: 20030501
  3. CETIRIZINE HCL [Suspect]
     Indication: RHINITIS ALLERGIC
     Route: 048
     Dates: start: 20030501, end: 20030501

REACTIONS (7)
  - BRADYCARDIA [None]
  - MULTIPLE DRUG OVERDOSE INTENTIONAL [None]
  - COMPLETED SUICIDE [None]
  - ALTERED STATE OF CONSCIOUSNESS [None]
  - HYPOTENSION [None]
  - CONVULSION [None]
  - RESPIRATORY FAILURE [None]
